FAERS Safety Report 7647278-9 (Version None)
Quarter: 2011Q3

REPORT INFORMATION
  Report Type: 
  Country: None (occurrence: None)
  Receive Date: 20110801
  Receipt Date: 20110726
  Transmission Date: 20111222
  Serious: Yes (Death, Other)
  Sender: FDA-Public Use
  Company Number: US-ROCHE-776345

PATIENT
  Sex: Male

DRUGS (3)
  1. PREDNISONE [Suspect]
     Route: 048
     Dates: start: 20070409, end: 20110605
  2. MYCOPHENOLATE MOFETIL [Suspect]
     Route: 048
     Dates: start: 20070308, end: 20110605
  3. CYCLOSPORINE [Suspect]
     Route: 048
     Dates: start: 20080219, end: 20110605

REACTIONS (2)
  - IRIS NEOPLASM [None]
  - BASAL CELL CARCINOMA [None]
